FAERS Safety Report 6011920-9 (Version None)
Quarter: 2008Q4

REPORT INFORMATION
  Report Type: 
  Country: None (occurrence: None)
  Receive Date: 20081218
  Receipt Date: 20081002
  Transmission Date: 20090506
  Serious: No
  Sender: FDA-Public Use
  Company Number: US-ASTRAZENECA-2008UW21553

PATIENT
  Age: 71 Year
  Sex: Male
  Weight: 104.3 kg

DRUGS (1)
  1. CRESTOR [Suspect]
     Indication: DYSLIPIDAEMIA
     Dosage: 5 MG
     Route: 048
     Dates: start: 20081001

REACTIONS (1)
  - MUSCLE SPASMS [None]
